FAERS Safety Report 10598270 (Version 9)
Quarter: 2015Q2

REPORT INFORMATION
  Report Type: Spontaneous
  Country: US (occurrence: US)
  Receive Date: 20141121
  Receipt Date: 20150504
  Transmission Date: 20150821
  Serious: Yes (Hospitalization, Other)
  Sender: FDA-Public Use
  Company Number: US-PFIZER INC-2014316676

PATIENT
  Age: 81 Year
  Sex: Female
  Weight: 39 kg

DRUGS (7)
  1. LATANOPROST BAUSCH+LOMB [Suspect]
     Active Substance: LATANOPROST
     Dosage: UNK
     Dates: start: 2010
  2. XALATAN [Suspect]
     Active Substance: LATANOPROST
     Indication: ANGLE CLOSURE GLAUCOMA
     Dosage: 2 GTT (1 GTT IN EACH EYE), 1X/DAY (EVENING)
     Route: 047
     Dates: start: 200912
  3. LATANOPROST BAUSCH+LOMB [Suspect]
     Active Substance: LATANOPROST
     Dosage: UNK
  4. LATANOPROST. [Suspect]
     Active Substance: LATANOPROST
     Indication: ANGLE CLOSURE GLAUCOMA
     Dosage: 2 GTT, (1 GTT BOTH EYES), 1XDAY (QHS)
     Route: 047
     Dates: start: 201303
  5. XALATAN [Suspect]
     Active Substance: LATANOPROST
     Indication: LACRIMAL DISORDER
  6. SYSTANE BALANCE [Concomitant]
     Active Substance: PROPYLENE GLYCOL
     Dosage: UNK, 1X/DAY (USED IN EARLY MORNING, EVERY MORNING)
  7. LUMIGAN [Suspect]
     Active Substance: BIMATOPROST
     Indication: ANGLE CLOSURE GLAUCOMA
     Dosage: UNK

REACTIONS (17)
  - Blindness [Not Recovered/Not Resolved]
  - Vision blurred [Unknown]
  - Eye irritation [Recovered/Resolved]
  - Skin discolouration [Recovered/Resolved]
  - Local reaction [Unknown]
  - Influenza [Unknown]
  - Erythema [Not Recovered/Not Resolved]
  - Anxiety [Unknown]
  - Visual field defect [Unknown]
  - Eye swelling [Not Recovered/Not Resolved]
  - Dry eye [Unknown]
  - Visual acuity reduced [Unknown]
  - Weight decreased [Unknown]
  - Deafness [Not Recovered/Not Resolved]
  - Eye disorder [Unknown]
  - Ocular hyperaemia [Unknown]
  - Pain [Unknown]

NARRATIVE: CASE EVENT DATE: 2009
